FAERS Safety Report 6112659-1 (Version None)
Quarter: 2009Q1

REPORT INFORMATION
  Report Type: 
  Country: None (occurrence: None)
  Receive Date: 20090310
  Receipt Date: 20090224
  Transmission Date: 20090719
  Serious: Yes (Life-Threatening, Hospitalization)
  Sender: FDA-Public Use
  Company Number: GXKR2009FI0334

PATIENT
  Age: 38 Year
  Sex: Male

DRUGS (4)
  1. AMLODIPINE [Suspect]
     Indication: INCORRECT DOSE ADMINISTERED
     Dosage: 630 MG, ONCE/SINGLE
  2. ZOPICLONE (NGX) (ZOPICLONE) UNKNOWN [Suspect]
     Indication: INCORRECT DOSE ADMINISTERED
     Dosage: 300 MG, ONCE/SINGLE
  3. CITALOPRAM HYDROBROMIDE [Concomitant]
  4. ACETAMINOPHEN [Concomitant]

REACTIONS (11)
  - CARDIAC FAILURE [None]
  - CARDIOMEGALY [None]
  - CIRCULATORY COLLAPSE [None]
  - COMA [None]
  - EJECTION FRACTION DECREASED [None]
  - ENDOTRACHEAL INTUBATION [None]
  - HYPOTENSION [None]
  - METABOLIC ACIDOSIS [None]
  - OVERDOSE [None]
  - PNEUMONIA [None]
  - PULSE ABSENT [None]
